FAERS Safety Report 10870114 (Version 7)
Quarter: 2015Q4

REPORT INFORMATION
  Report Type: Spontaneous
  Country: US (occurrence: US)
  Receive Date: 20150226
  Receipt Date: 20151015
  Transmission Date: 20160304
  Serious: Yes (Death, Other)
  Sender: FDA-Public Use
  Company Number: US-SANOFI-AVENTIS-2012SA017514

PATIENT
  Age: 69 Year
  Sex: Female
  Weight: 69 kg

DRUGS (34)
  1. PLAVIX [Suspect]
     Active Substance: CLOPIDOGREL BISULFATE
     Indication: ARTERIAL OCCLUSIVE DISEASE
     Route: 065
     Dates: start: 20050914, end: 20061015
  2. ASA [Concomitant]
     Active Substance: ASPIRIN
  3. K-DUR [Concomitant]
     Active Substance: POTASSIUM CHLORIDE
  4. METFORMIN [Concomitant]
     Active Substance: METFORMIN HYDROCHLORIDE
     Route: 048
  5. LANTUS [Concomitant]
     Active Substance: INSULIN GLARGINE
     Dosage: 18U QAM
  6. JANUVIA [Concomitant]
     Active Substance: SITAGLIPTIN PHOSPHATE
     Dosage: 100MG
  7. DETROL LA [Concomitant]
     Active Substance: TOLTERODINE TARTRATE
     Dosage: LA 4MG
  8. CODEINE [Concomitant]
     Active Substance: CODEINE
  9. CLOTRIMAZOLE. [Concomitant]
     Active Substance: CLOTRIMAZOLE
  10. DOXYCYCLINE. [Concomitant]
     Active Substance: DOXYCYCLINE
     Dosage: 100
  11. XOPENEX [Concomitant]
     Active Substance: LEVALBUTEROL HYDROCHLORIDE
  12. DIOVAN [Concomitant]
     Active Substance: VALSARTAN
     Route: 048
  13. TOPROL XL [Concomitant]
     Active Substance: METOPROLOL SUCCINATE
  14. LYRICA [Concomitant]
     Active Substance: PREGABALIN
     Dosage: 75MG
  15. ALBUTEROL. [Concomitant]
     Active Substance: ALBUTEROL
     Dosage: INHALER Q4 DOSE:2 PUFF(S)
  16. CARVEDILOL. [Concomitant]
     Active Substance: CARVEDILOL
     Route: 048
  17. ZETIA [Concomitant]
     Active Substance: EZETIMIBE
  18. LIPITOR [Concomitant]
     Active Substance: ATORVASTATIN CALCIUM
     Route: 048
  19. GLUCOTROL [Concomitant]
     Active Substance: GLIPIZIDE
     Dosage: 5MG
  20. ROBITUSSIN (GUAIFENESIN) [Concomitant]
     Active Substance: GUAIFENESIN
     Dosage: AC
  21. HYDROCHLOROTHIAZIDE. [Concomitant]
     Active Substance: HYDROCHLOROTHIAZIDE
     Route: 048
  22. ASPIRIN. [Suspect]
     Active Substance: ASPIRIN
     Route: 065
     Dates: start: 200510
  23. DIGOXIN. [Concomitant]
     Active Substance: DIGOXIN
     Route: 048
  24. FENTANYL. [Concomitant]
     Active Substance: FENTANYL
  25. PLAVIX [Suspect]
     Active Substance: CLOPIDOGREL BISULFATE
     Indication: PERIPHERAL ARTERIAL OCCLUSIVE DISEASE
     Route: 065
     Dates: start: 20050914, end: 20061015
  26. GLIPIZIDE. [Concomitant]
     Active Substance: GLIPIZIDE
  27. GLUCOPHAGE [Concomitant]
     Active Substance: METFORMIN HYDROCHLORIDE
  28. PROAMATINE [Concomitant]
     Active Substance: MIDODRINE HYDROCHLORIDE
     Indication: HYPERTENSION
     Dosage: 10MG
  29. ZITHROMAX [Concomitant]
     Active Substance: AZITHROMYCIN DIHYDRATE
     Dosage: 250NNG  2TABS PO DAYS, THEN 1 TAB QD DAYS2-5
     Route: 048
  30. NIFEDICAL XL [Concomitant]
     Active Substance: NIFEDIPINE
     Route: 048
  31. POTASSIUM CHLORIDE. [Concomitant]
     Active Substance: POTASSIUM CHLORIDE
  32. LASIX [Concomitant]
     Active Substance: FUROSEMIDE
  33. PHENERGAN [Concomitant]
     Active Substance: PROMETHAZINE HYDROCHLORIDE
     Dosage: VC W/ CODEINE 1 TSP PO Q4 PRN
     Route: 048
  34. LOSARTAN POTASSIUM. [Concomitant]
     Active Substance: LOSARTAN POTASSIUM
     Route: 048

REACTIONS (3)
  - Diplegia [Unknown]
  - Spinal cord haematoma [Unknown]
  - Haemorrhage [Unknown]

NARRATIVE: CASE EVENT DATE: 200608
